FAERS Safety Report 7585667-1 (Version None)
Quarter: 2011Q2

REPORT INFORMATION
  Report Type: 
  Country: None (occurrence: None)
  Receive Date: 20110629
  Receipt Date: 20110629
  Transmission Date: 20111010
  Serious: Yes (Other)
  Sender: FDA-Public Use
  Company Number: None

PATIENT
  Age: 63 Year
  Sex: Female
  Weight: 52.1637 kg

DRUGS (2)
  1. PROLIA [Suspect]
     Indication: OSTEOPOROSIS
     Dosage: 15 SHOT EVERY 6 MO.
     Dates: start: 20110518
  2. PROLIA [Suspect]
     Indication: BONE DENSITY ABNORMAL
     Dosage: 15 SHOT EVERY 6 MO.
     Dates: start: 20110518

REACTIONS (2)
  - BACK PAIN [None]
  - MYALGIA [None]
